FAERS Safety Report 24166035 (Version 1)
Quarter: 2024Q3

REPORT INFORMATION
  Report Type: Other
  Country: DE (occurrence: DE)
  Receive Date: 20240802
  Receipt Date: 20240802
  Transmission Date: 20241016
  Serious: Yes (Other)
  Sender: ALVOGEN
  Company Number: DE-ALVOGEN-2024095162

PATIENT
  Age: 37 Year
  Sex: Female

DRUGS (1)
  1. DEXTROAMPHET SACCHARAT, AMPHET ASPARTATE, DEXTROAMPHET SULFATE AND AMP [Suspect]
     Active Substance: AMPHETAMINE ASPARTATE\AMPHETAMINE SULFATE\DEXTROAMPHETAMINE SACCHARATE\DEXTROAMPHETAMINE SULFATE
     Indication: Drug abuse
     Dosage: USE OF ?SPEED? WAS SUSPECTED

REACTIONS (3)
  - Locked-in syndrome [Recovering/Resolving]
  - Brain stem haemorrhage [Recovering/Resolving]
  - Drug abuse [Unknown]
